FAERS Safety Report 7868277-8 (Version None)
Quarter: 2011Q4

REPORT INFORMATION
  Report Type: 
  Country: None (occurrence: None)
  Receive Date: 20111028
  Receipt Date: 20111017
  Transmission Date: 20120403
  Serious: Yes (Other)
  Sender: FDA-Public Use
  Company Number: CH-ELI_LILLY_AND_COMPANY-CH201110005797

PATIENT
  Age: 54 Year

DRUGS (5)
  1. CISPLATIN [Concomitant]
     Indication: LUNG ADENOCARCINOMA
     Dosage: UNK, UNKNOWN
     Route: 065
  2. CARBOPLATIN [Concomitant]
     Indication: LUNG ADENOCARCINOMA
     Dosage: UNK, UNKNOWN
     Route: 065
  3. GEMCITABINE HYDROCHLORIDE [Suspect]
     Indication: LUNG ADENOCARCINOMA
     Dosage: UNK, UNKNOWN
     Route: 065
  4. PEMETREXED [Suspect]
     Indication: LUNG ADENOCARCINOMA
     Dosage: UNK, UNKNOWN
     Route: 065
  5. ERLOTINIB HYDROCHLORIDE [Concomitant]

REACTIONS (6)
  - PULMONARY HAEMORRHAGE [None]
  - DERMATITIS ACNEIFORM [None]
  - VENOUS THROMBOSIS [None]
  - PULMONARY TOXICITY [None]
  - PULMONARY EMBOLISM [None]
  - NEOPLASM PROGRESSION [None]
